FAERS Safety Report 8869140 (Version 1)
Quarter: 2012Q4

REPORT INFORMATION
  Report Type: Spontaneous
  Country: GB (occurrence: None)
  Receive Date: 20121023
  Receipt Date: 20121023
  Transmission Date: 20130627
  Serious: Yes (Hospitalization)
  Sender: FDA-Public Use
  Company Number: GER/UKI/12/0026277

PATIENT

DRUGS (1)
  1. ALENDRONATE [Suspect]
     Indication: DRUG USE FOR UNKNOWN INDICATION
     Dosage: Oral
     Route: 048

REACTIONS (3)
  - Cerebrovascular accident [None]
  - Hospitalisation [None]
  - Wrong technique in drug usage process [None]
